FAERS Safety Report 22863132 (Version 3)
Quarter: 2024Q3

REPORT INFORMATION
  Report Type: Report from Study
  Country: JP (occurrence: JP)
  Receive Date: 20230824
  Receipt Date: 20240819
  Transmission Date: 20241017
  Serious: Yes (Other)
  Sender: VIIV
  Company Number: JP-VIIV HEALTHCARE LIMITED-JP2018JPN152795

PATIENT

DRUGS (2)
  1. ABACAVIR SULFATE\DOLUTEGRAVIR SODIUM\LAMIVUDINE [Suspect]
     Active Substance: ABACAVIR SULFATE\DOLUTEGRAVIR SODIUM\LAMIVUDINE
     Indication: HIV infection
     Dosage: 1 DF, 1D
     Route: 048
     Dates: start: 20170715, end: 20220120
  2. DOVATO [Suspect]
     Active Substance: DOLUTEGRAVIR SODIUM\LAMIVUDINE
     Indication: HIV infection
     Dosage: 1 DF, 1D
     Dates: start: 20220121

REACTIONS (14)
  - Herpes zoster [Recovering/Resolving]
  - Stomatitis [Recovering/Resolving]
  - Head injury [Recovering/Resolving]
  - Alopecia areata [Recovering/Resolving]
  - Insomnia [Recovering/Resolving]
  - Bronchitis [Recovering/Resolving]
  - Seasonal allergy [Recovering/Resolving]
  - Hepatitis C [Not Recovered/Not Resolved]
  - Bronchitis [Recovering/Resolving]
  - Rhinitis [Recovering/Resolving]
  - Syphilis [Recovering/Resolving]
  - COVID-19 [Recovered/Resolved]
  - Syphilis [Recovering/Resolving]
  - Depression [Not Recovered/Not Resolved]

NARRATIVE: CASE EVENT DATE: 20220425
